FAERS Safety Report 6285159-6 (Version None)
Quarter: 2009Q3

REPORT INFORMATION
  Report Type: 
  Country: None (occurrence: None)
  Receive Date: 20090727
  Receipt Date: 20090713
  Transmission Date: 20100115
  Serious: Yes (Other)
  Sender: FDA-Public Use
  Company Number: PHHY2009GB19249

PATIENT
  Sex: Male

DRUGS (1)
  1. CLOZARIL [Suspect]
     Indication: SCHIZOPHRENIA
     Dosage: {100 MG/DAY
     Route: 048
     Dates: start: 20090508, end: 20090519

REACTIONS (4)
  - CHEST PAIN [None]
  - DYSPEPSIA [None]
  - ERYTHEMA [None]
  - HEAT RASH [None]
